FAERS Safety Report 18263045 (Version 1)
Quarter: 2020Q3

REPORT INFORMATION
  Report Type: Spontaneous
  Country: US (occurrence: US)
  Receive Date: 20200914
  Receipt Date: 20200914
  Transmission Date: 20201103
  Serious: No
  Sender: FDA-Public Use
  Company Number: None

PATIENT
  Age: 2 Year
  Sex: Male
  Weight: 11.9 kg

DRUGS (1)
  1. PROPOFOL. [Suspect]
     Active Substance: PROPOFOL
     Dates: start: 20200913, end: 20200914

REACTIONS (2)
  - Tremor [None]
  - Pyrexia [None]

NARRATIVE: CASE EVENT DATE: 20200914
